FAERS Safety Report 5176024-6 (Version None)
Quarter: 2006Q4

REPORT INFORMATION
  Report Type: 
  Country: None (occurrence: None)
  Receive Date: 20061215
  Receipt Date: 20061204
  Transmission Date: 20070319
  Serious: Yes (Hospitalization)
  Sender: FDA-Public Use
  Company Number: GB-ROCHE-474056

PATIENT
  Sex: Male
  Weight: 97 kg

DRUGS (3)
  1. RIBAVIRIN [Suspect]
     Indication: HEPATITIS C
     Route: 048
     Dates: start: 20060630, end: 20061116
  2. ACETAMINOPHEN [Concomitant]
     Route: 048
     Dates: start: 20060630
  3. VIRAFERONPEG [Concomitant]
     Indication: HEPATITIS C
     Route: 058
     Dates: start: 20060630

REACTIONS (1)
  - PORPHYRIA [None]
